FAERS Safety Report 6570960-1 (Version None)
Quarter: 2010Q1

REPORT INFORMATION
  Report Type: 
  Country: None (occurrence: None)
  Receive Date: 20100204
  Receipt Date: 20100126
  Transmission Date: 20100710
  Serious: Yes (Hospitalization)
  Sender: FDA-Public Use
  Company Number: PHEH2009US11383

PATIENT
  Sex: Male

DRUGS (7)
  1. EXJADE [Suspect]
     Indication: IRON OVERLOAD
     Dosage: 1500 MG, DAILY
     Route: 048
     Dates: start: 20090902, end: 20090918
  2. RYTHMOL [Concomitant]
  3. DILTIAZEM [Concomitant]
  4. LEXAPRO [Concomitant]
  5. ACIPHEX [Concomitant]
  6. COUMADIN [Concomitant]
  7. ANTIBIOTICS [Concomitant]
     Indication: INFECTION
     Dosage: UNK
     Dates: start: 20090101

REACTIONS (2)
  - BONE MARROW DISORDER [None]
  - DIARRHOEA [None]
